FAERS Safety Report 11993284 (Version 1)
Quarter: 2016Q1

REPORT INFORMATION
  Report Type: Spontaneous
  Country: US (occurrence: US)
  Receive Date: 20160203
  Receipt Date: 20160203
  Transmission Date: 20160526
  Serious: Yes (Other)
  Sender: FDA-Public Use
  Company Number: PHEH2016US002342

PATIENT
  Age: 37 Year
  Sex: Female
  Weight: 189 kg

DRUGS (1)
  1. GILENYA [Suspect]
     Active Substance: FINGOLIMOD HYDROCHLORIDE
     Indication: MULTIPLE SCLEROSIS
     Dosage: 0.5 MG, QD
     Route: 048
     Dates: start: 20150406, end: 20150406

REACTIONS (8)
  - Tachycardia [Recovered/Resolved]
  - Hypoaesthesia [Unknown]
  - Dyskinesia [Unknown]
  - Seizure [Unknown]
  - Hypertension [Recovered/Resolved]
  - Headache [Unknown]
  - Speech disorder [Unknown]
  - Grunting [Unknown]

NARRATIVE: CASE EVENT DATE: 20150406
